FAERS Safety Report 9289953 (Version 3)
Quarter: 2013Q2

REPORT INFORMATION
  Report Type: Spontaneous
  Country: US (occurrence: US)
  Receive Date: 20130515
  Receipt Date: 20130620
  Transmission Date: 20140414
  Serious: Yes (Hospitalization, Other)
  Sender: FDA-Public Use
  Company Number: US-JNJFOC-20130506106

PATIENT
  Age: 68 Year
  Sex: Male
  Weight: 121.56 kg

DRUGS (30)
  1. XARELTO [Suspect]
     Indication: CEREBROVASCULAR ACCIDENT PROPHYLAXIS
     Route: 048
     Dates: start: 201211, end: 201304
  2. XARELTO [Suspect]
     Indication: ATRIAL FIBRILLATION
     Route: 048
     Dates: start: 201211, end: 201304
  3. BAYER ASPIRIN [Suspect]
     Indication: PRODUCT USED FOR UNKNOWN INDICATION
     Route: 048
     Dates: end: 201304
  4. FISH OIL OMEGA 3 [Concomitant]
     Dosage: 1000 MG CAPSULE
     Route: 048
  5. FERROUS SULFATE [Concomitant]
     Indication: IRON DEFICIENCY ANAEMIA
     Dosage: WITH MEALS
     Route: 048
  6. POTASSIUM [Concomitant]
     Indication: PRODUCT USED FOR UNKNOWN INDICATION
     Route: 048
  7. MAG-OX [Concomitant]
     Indication: MEDICAL DIET
     Route: 048
  8. LIPITOR [Concomitant]
     Indication: BLOOD CHOLESTEROL ABNORMAL
     Route: 048
  9. COREG [Concomitant]
     Dosage: WITH BREAKFAST AND DINNER
     Route: 048
  10. LANOXIN [Concomitant]
     Route: 048
  11. MULTIVITAMINS [Concomitant]
     Route: 048
  12. NIASPAN [Concomitant]
     Route: 048
  13. PROTONIX [Concomitant]
     Route: 048
  14. KLOR-CON (POTASSIUM CHLORIDE) [Concomitant]
     Route: 048
  15. ACCUPRIL [Concomitant]
     Route: 048
  16. ALDACTONE [Concomitant]
     Route: 048
  17. DEMADEX [Concomitant]
     Route: 048
  18. DEMADEX [Concomitant]
     Route: 048
  19. COENZYME Q10 [Concomitant]
     Route: 048
  20. VITAMIN C [Concomitant]
     Indication: VITAMIN SUPPLEMENTATION
     Route: 048
  21. PACERONE [Concomitant]
     Indication: VENTRICULAR TACHYCARDIA
     Dosage: 200 MG TABLET, ALTERNATING WITH 100 MG EVERY OTHER DAY
     Route: 048
  22. PACERONE [Concomitant]
     Indication: VENTRICULAR TACHYCARDIA
     Route: 048
  23. PACERONE [Concomitant]
     Indication: ATRIAL FIBRILLATION
     Dosage: 200 MG TABLET, ALTERNATING WITH 100 MG EVERY OTHER DAY
     Route: 048
  24. PACERONE [Concomitant]
     Indication: ATRIAL FIBRILLATION
     Route: 048
  25. NIRAVAM [Concomitant]
     Indication: ANXIETY
     Route: 048
  26. NIRAVAM [Concomitant]
     Indication: ANXIETY
     Dosage: AS NEEDED
     Route: 048
  27. IRON [Concomitant]
     Indication: MINERAL SUPPLEMENTATION
     Route: 048
  28. LASIX [Concomitant]
     Indication: PRODUCT USED FOR UNKNOWN INDICATION
     Route: 048
  29. PRAVACHOL [Concomitant]
     Route: 048
  30. ZANTAC [Concomitant]
     Route: 048

REACTIONS (14)
  - Gastrointestinal haemorrhage [Recovering/Resolving]
  - Glomerular filtration rate decreased [Recovering/Resolving]
  - Gastrointestinal haemorrhage [Recovering/Resolving]
  - Gastrointestinal haemorrhage [Recovering/Resolving]
  - Hypotension [Recovering/Resolving]
  - Nocturia [Recovering/Resolving]
  - Weight decreased [Recovering/Resolving]
  - Fatigue [Recovering/Resolving]
  - Tinnitus [Recovering/Resolving]
  - Constipation [Recovering/Resolving]
  - Pruritus [Recovering/Resolving]
  - Paraesthesia [Recovering/Resolving]
  - Temperature intolerance [Recovering/Resolving]
  - Increased tendency to bruise [Recovering/Resolving]
